FAERS Safety Report 9009529 (Version 2)
Quarter: 2013Q4

REPORT INFORMATION
  Report Type: Spontaneous
  Country: US (occurrence: US)
  Receive Date: 20130110
  Receipt Date: 20131024
  Transmission Date: 20140711
  Serious: Yes (Other)
  Sender: FDA-Public Use
  Company Number: US-GLAXOSMITHKLINE-B0857593A

PATIENT
  Age: 81 Year
  Sex: Male

DRUGS (2)
  1. PROPAFENONE [Suspect]
     Indication: ATRIAL FIBRILLATION
     Dosage: 150MG SINGLE DOSE
     Route: 048
  2. QUINIDINE GLUCONATE [Suspect]
     Indication: ATRIAL FIBRILLATION
     Route: 048

REACTIONS (3)
  - Syncope [Recovered/Resolved]
  - Myocardial stunning [Recovered/Resolved]
  - Arrhythmia [Recovered/Resolved]
